FAERS Safety Report 24647244 (Version 3)
Quarter: 2025Q3

REPORT INFORMATION
  Report Type: Spontaneous
  Country: US (occurrence: US)
  Receive Date: 20241121
  Receipt Date: 20250810
  Transmission Date: 20251021
  Serious: Yes (Death, Hospitalization, Other)
  Sender: ALEXION PHARMACEUTICALS
  Company Number: US-ASTRAZENECA-202410USA021059US

PATIENT
  Sex: Female
  Weight: 45.7 kg

DRUGS (1)
  1. SELUMETINIB [Suspect]
     Active Substance: SELUMETINIB

REACTIONS (13)
  - Malignant neoplasm progression [Fatal]
  - Deep vein thrombosis [Unknown]
  - Pulmonary embolism [Unknown]
  - Lactic acidosis [Unknown]
  - Metastases to peritoneum [Unknown]
  - Thrombocytopenia [Unknown]
  - Dyspnoea [Unknown]
  - Heparin-induced thrombocytopenia test positive [Unknown]
  - Hyponatraemia [Unknown]
  - Hypotension [Unknown]
  - Tachycardia [Unknown]
  - Anaemia [Unknown]
  - Pleural effusion [Unknown]

NARRATIVE: CASE EVENT DATE: 20240801
